FAERS Safety Report 4636724-0 (Version None)
Quarter: 2005Q2

REPORT INFORMATION
  Report Type: 
  Country: None (occurrence: None)
  Receive Date: 20050414
  Receipt Date: 20050405
  Transmission Date: 20051028
  Serious: Yes (Hospitalization)
  Sender: FDA-Public Use
  Company Number: 2005-04-0454

PATIENT
  Age: 51 Year
  Sex: Male

DRUGS (6)
  1. PEG-INTRON [Suspect]
     Indication: HEPATITIS C
     Dates: start: 20050322
  2. RIBAVIRIN [Suspect]
     Indication: HEPATITIS C
     Dosage: ORAL
     Route: 048
     Dates: start: 20050322
  3. TARKA (TANDOLAPRIL/VERAPAMIL) [Concomitant]
  4. PROPRANOLOL [Concomitant]
  5. EFFEXOR (VENLAFAXINE HCL) TABLETS [Concomitant]
  6. ANALGESIC (NOS) [Suspect]
     Indication: PAIN

REACTIONS (2)
  - DRUG INTERACTION [None]
  - HEPATITIS C [None]
